FAERS Safety Report 9602566 (Version 2)
Quarter: 2013Q4

REPORT INFORMATION
  Report Type: Spontaneous
  Country: US (occurrence: US)
  Receive Date: 20131007
  Receipt Date: 20131022
  Transmission Date: 20140711
  Serious: Yes (Other)
  Sender: FDA-Public Use
  Company Number: US-PFIZER INC-2013284245

PATIENT
  Age: 57 Year
  Sex: Female
  Weight: 56 kg

DRUGS (11)
  1. LYRICA [Suspect]
     Indication: FIBROMYALGIA
     Dosage: 100 MG, 3X/DAY
     Route: 048
     Dates: end: 2013
  2. FENTANYL [Concomitant]
     Indication: PAIN
     Dosage: UNK
  3. MORPHINE [Concomitant]
     Indication: PAIN
     Dosage: UNK
  4. ZOCOR [Concomitant]
     Indication: BLOOD CHOLESTEROL INCREASED
     Dosage: UNK
  5. MOBIC [Concomitant]
     Dosage: UNK
  6. ELAVIL [Concomitant]
     Dosage: UNK
  7. BACLOFEN [Concomitant]
     Dosage: UNK
  8. TOPROL XL [Concomitant]
     Dosage: UNK
  9. ASPIRIN [Concomitant]
     Dosage: 81 MG, UNK
  10. LIDOCAINE [Concomitant]
     Indication: BACK DISORDER
     Dosage: UNK
  11. ZOFRAN [Concomitant]
     Dosage: UNK

REACTIONS (5)
  - Loss of consciousness [Unknown]
  - Malaise [Unknown]
  - Pain [Not Recovered/Not Resolved]
  - Drug ineffective [Unknown]
  - Emotional disorder [Unknown]
